FAERS Safety Report 14732475 (Version 2)
Quarter: 2018Q2

REPORT INFORMATION
  Report Type: Spontaneous
  Country: US (occurrence: US)
  Receive Date: 20180409
  Receipt Date: 20180413
  Transmission Date: 20180711
  Serious: No
  Sender: FDA-Public Use
  Company Number: US-UNITED THERAPEUTICS-UNT-2017-018067

PATIENT
  Sex: Female
  Weight: 58.96 kg

DRUGS (3)
  1. REMODULIN [Suspect]
     Active Substance: TREPROSTINIL
     Dosage: 0.027 ?G/KG, CONTINUING
     Route: 041
  2. REMODULIN [Suspect]
     Active Substance: TREPROSTINIL
     Indication: PULMONARY ARTERIAL HYPERTENSION
     Dosage: 0.028 ?G/KG, CONTINUING
     Route: 041
     Dates: start: 20171120
  3. REMODULIN [Suspect]
     Active Substance: TREPROSTINIL
     Dosage: 0.029 ?G/KG, CONTINUING
     Route: 041

REACTIONS (15)
  - Asthenia [Unknown]
  - Nausea [Not Recovered/Not Resolved]
  - Retching [Unknown]
  - Dyspnoea exertional [Unknown]
  - Vomiting [Unknown]
  - Diarrhoea [Not Recovered/Not Resolved]
  - Dysgeusia [Unknown]
  - Eating disorder [Recovered/Resolved]
  - Sputum discoloured [Unknown]
  - Pruritus generalised [Unknown]
  - Productive cough [Not Recovered/Not Resolved]
  - Decreased appetite [Unknown]
  - Rash generalised [Recovered/Resolved]
  - Weight decreased [Unknown]
  - Rales [Unknown]

NARRATIVE: CASE EVENT DATE: 2017
